FAERS Safety Report 14529675 (Version 1)
Quarter: 2018Q1

REPORT INFORMATION
  Report Type: Spontaneous
  Country: CN (occurrence: CN)
  Receive Date: 20180214
  Receipt Date: 20180214
  Transmission Date: 20180509
  Serious: Yes (Hospitalization, Disabling, Other)
  Sender: FDA-Public Use
  Company Number: CN-GLAXOSMITHKLINE-CN2018GSK022464

PATIENT
  Age: 43 Year
  Sex: Male

DRUGS (2)
  1. ADEFOVIR DIPIVOXIL. [Suspect]
     Active Substance: ADEFOVIR DIPIVOXIL
     Indication: CHRONIC HEPATITIS B
     Dosage: 10 MG/DAY
  2. LAMIVUDINE. [Suspect]
     Active Substance: LAMIVUDINE
     Indication: CHRONIC HEPATITIS B
     Dosage: 10 MG/DAY
     Dates: start: 200302

REACTIONS (22)
  - Discomfort [Unknown]
  - Osteomalacia [Recovering/Resolving]
  - Tenderness [Unknown]
  - Hypouricaemia [Unknown]
  - Blood uric acid increased [Unknown]
  - Bone pain [Unknown]
  - Back pain [Recovering/Resolving]
  - Bone marrow oedema [Unknown]
  - Blood creatinine increased [Unknown]
  - Drug resistance [Unknown]
  - Arthralgia [Recovering/Resolving]
  - Musculoskeletal stiffness [Unknown]
  - Blood alkaline phosphatase increased [Unknown]
  - Metabolic acidosis [Unknown]
  - Urine phosphorus increased [Unknown]
  - Hyperphosphaturia [Unknown]
  - Osteonecrosis [Unknown]
  - Bone density decreased [Unknown]
  - Fanconi syndrome [Recovering/Resolving]
  - Hypophosphataemia [Recovering/Resolving]
  - Movement disorder [Unknown]
  - Hypercalciuria [Unknown]
